FAERS Safety Report 7812187-9 (Version None)
Quarter: 2011Q4

REPORT INFORMATION
  Report Type: 
  Country: None (occurrence: None)
  Receive Date: 20111013
  Receipt Date: 20111004
  Transmission Date: 20120403
  Serious: Yes (Hospitalization)
  Sender: FDA-Public Use
  Company Number: US-KINGPHARMUSA00001-K201101119

PATIENT
  Sex: Male

DRUGS (3)
  1. EPIPEN [Suspect]
     Indication: ARTHROPOD STING
     Dosage: 0.3 MG, SINGLE
     Route: 030
  2. EPIPEN [Suspect]
     Indication: ANAPHYLACTIC REACTION
  3. ADDERALL 5 [Concomitant]
     Dosage: UNK

REACTIONS (7)
  - SPINAL FRACTURE [None]
  - ABASIA [None]
  - HYPOAESTHESIA [None]
  - MUSCLE SPASMS [None]
  - PARAESTHESIA [None]
  - PAIN IN EXTREMITY [None]
  - EXPIRED DRUG ADMINISTERED [None]
